FAERS Safety Report 15890623 (Version 1)
Quarter: 2019Q1

REPORT INFORMATION
  Report Type: Spontaneous
  Country: FR (occurrence: FR)
  Receive Date: 20190130
  Receipt Date: 20190130
  Transmission Date: 20190417
  Serious: Yes (Hospitalization)
  Sender: FDA-Public Use
  Company Number: FR-TEVA-2019-FR-1003606

PATIENT
  Age: 71 Year
  Sex: Male

DRUGS (12)
  1. HUMALOG [Concomitant]
     Active Substance: INSULIN LISPRO
     Route: 058
  2. PANTOPRAZOLE [Concomitant]
     Active Substance: PANTOPRAZOLE
     Dosage: 40 MILLIGRAM DAILY;
     Route: 048
  3. PERINDOPRIL [Concomitant]
     Active Substance: PERINDOPRIL
     Dosage: 5 MILLIGRAM DAILY;
     Route: 048
  4. ATENOLOL. [Concomitant]
     Active Substance: ATENOLOL
     Dosage: 25 MILLIGRAM DAILY;
     Route: 048
  5. METFORMINE [Concomitant]
     Active Substance: METFORMIN HYDROCHLORIDE
     Dosage: 2000 IU (INTERNATIONAL UNIT) DAILY;
     Route: 048
  6. CISPLATINE [Suspect]
     Active Substance: CISPLATIN
     Indication: LUNG NEOPLASM MALIGNANT
     Route: 042
     Dates: start: 20180530, end: 20180530
  7. KLIPAL CODEINE 600 MG/50 MG, COMPRIM? [Concomitant]
     Active Substance: ACETAMINOPHEN\CODEINE PHOSPHATE
     Dosage: 3 DOSAGE FORMS DAILY;
     Route: 048
  8. VOGALENE [Concomitant]
     Active Substance: METOPIMAZINE
     Dosage: 3 DOSAGE FORMS DAILY;
     Route: 048
  9. LANTUS [Concomitant]
     Active Substance: INSULIN GLARGINE
     Dosage: 32 IU (INTERNATIONAL UNIT) DAILY;
     Route: 058
  10. ELIQUIS [Concomitant]
     Active Substance: APIXABAN
     Dosage: 2 DOSAGE FORMS DAILY;
     Route: 048
     Dates: start: 20180608
  11. NAVELBINE [Concomitant]
     Active Substance: VINORELBINE TARTRATE
     Route: 042
     Dates: start: 20180530, end: 20180607
  12. LASILIX 40 MG, COMPRIM? S?CABLE [Concomitant]
     Active Substance: FUROSEMIDE
     Dosage: 2 DOSAGE FORMS DAILY;
     Route: 048

REACTIONS (2)
  - Acute kidney injury [Recovering/Resolving]
  - Hyponatraemia [Recovering/Resolving]

NARRATIVE: CASE EVENT DATE: 20180614
